FAERS Safety Report 8915261 (Version 2)
Quarter: 2012Q4

REPORT INFORMATION
  Report Type: 
  Country: US (occurrence: US)
  Receive Date: 20121116
  Receipt Date: 20121226
  Transmission Date: 20130627
  Serious: Yes (Hospitalization, Disabling, Other)
  Sender: FDA-Public Use
  Company Number: US-009507513-1103USA00966

PATIENT

DRUGS (5)
  1. FOSAMAX [Suspect]
     Dosage: 70 mg, UNK
     Route: 048
     Dates: start: 20040622, end: 20080206
  2. FOSAMAX [Suspect]
     Dosage: 70 UNK, UNK
     Route: 048
     Dates: start: 20091019, end: 20100222
  3. ALENDRONATE SODIUM [Suspect]
     Indication: OSTEOPOROSIS
     Dosage: 70 mg, UNK
     Route: 048
     Dates: start: 20080915, end: 20090117
  4. ALENDRONATE SODIUM [Suspect]
     Indication: OSTEOPOROSIS
     Dosage: 70 mg, UNK
     Route: 048
     Dates: start: 20090521
  5. ALENDRONATE SODIUM [Suspect]
     Indication: OSTEOPOROSIS
     Dosage: 70 mg, UNK
     Route: 048
     Dates: start: 20090624, end: 20090911

REACTIONS (31)
  - Femur fracture [Recovered/Resolved]
  - Open reduction of fracture [Unknown]
  - Fall [Unknown]
  - Humerus fracture [Recovered/Resolved]
  - Fracture [Unknown]
  - Cerebrovascular accident [Not Recovered/Not Resolved]
  - Fibromyalgia [Not Recovered/Not Resolved]
  - Cerebrovascular accident [Unknown]
  - Pulmonary arterial hypertension [Unknown]
  - Interstitial lung disease [Unknown]
  - Blood cholesterol increased [Not Recovered/Not Resolved]
  - Wrist fracture [Recovered/Resolved]
  - Device failure [Unknown]
  - Hypertension [Not Recovered/Not Resolved]
  - Ankle fracture [Unknown]
  - Foot fracture [Unknown]
  - Hand fracture [Unknown]
  - Fall [Unknown]
  - Wrist fracture [Unknown]
  - Bronchospasm [Unknown]
  - Iodine allergy [Unknown]
  - Dyspnoea [Unknown]
  - Anaemia [Unknown]
  - Anxiety [Unknown]
  - Asthma [Unknown]
  - Anaesthetic complication [Unknown]
  - Ovarian cystectomy [Unknown]
  - Acquired immunodeficiency syndrome [Unknown]
  - HIV infection [Unknown]
  - Complex regional pain syndrome [Unknown]
  - Periarthritis [Unknown]
